FAERS Safety Report 8335159-7 (Version None)
Quarter: 2012Q2

REPORT INFORMATION
  Report Type: 
  Country: None (occurrence: None)
  Receive Date: 20120503
  Receipt Date: 20120423
  Transmission Date: 20120825
  Serious: Yes (Hospitalization, Other)
  Sender: FDA-Public Use
  Company Number: BR-ABBOTT-12P-020-0926381-00

PATIENT
  Sex: Female
  Weight: 55 kg

DRUGS (5)
  1. HUMIRA [Suspect]
     Route: 058
     Dates: start: 20111216, end: 20111216
  2. HUMIRA [Suspect]
     Route: 058
     Dates: start: 20111231
  3. HUMIRA [Suspect]
     Indication: CROHN'S DISEASE
     Route: 058
     Dates: start: 20111201, end: 20111201
  4. HUMIRA [Suspect]
     Route: 058
  5. AZATHIOPRINE [Concomitant]
     Indication: PRODUCT USED FOR UNKNOWN INDICATION
     Route: 048
     Dates: start: 20111201

REACTIONS (10)
  - VOMITING [None]
  - LOCALISED INTRAABDOMINAL FLUID COLLECTION [None]
  - CROHN'S DISEASE [None]
  - POSTOPERATIVE ABSCESS [None]
  - CALCINOSIS [None]
  - ILEAL STENOSIS [None]
  - GASTROINTESTINAL NECROSIS [None]
  - OEDEMA [None]
  - DIARRHOEA [None]
  - ABDOMINAL PAIN [None]
